FAERS Safety Report 23753463 (Version 1)
Quarter: 2024Q2

REPORT INFORMATION
  Report Type: Spontaneous
  Country: US (occurrence: US)
  Receive Date: 20240417
  Receipt Date: 20240417
  Transmission Date: 20240716
  Serious: No
  Sender: FDA-Public Use
  Company Number: US-SANDOZ-SDZ2024US040046

PATIENT

DRUGS (1)
  1. HYRIMOZ [Suspect]
     Active Substance: ADALIMUMAB-ADAZ
     Indication: Arthritis reactive
     Dosage: 40 MG ONCE EVERY TWO WEEKS
     Route: 003
     Dates: start: 20240416

REACTIONS (1)
  - Injection site reaction [Recovered/Resolved]
